FAERS Safety Report 7226582-2 (Version None)
Quarter: 2011Q1

REPORT INFORMATION
  Report Type: 
  Country: None (occurrence: None)
  Receive Date: 20110114
  Receipt Date: 20110104
  Transmission Date: 20110831
  Serious: Yes (Other)
  Sender: FDA-Public Use
  Company Number: US-MYLANLABS-2010S1019858

PATIENT
  Age: 51 Year
  Sex: Male

DRUGS (5)
  1. FENTANYL-100 [Suspect]
     Indication: PAIN IN EXTREMITY
     Dosage: Q2D
     Route: 062
     Dates: start: 20070101, end: 20101023
  2. PREVACID [Concomitant]
     Indication: GASTROOESOPHAGEAL REFLUX DISEASE
     Route: 048
  3. NORCO [Concomitant]
     Indication: BREAKTHROUGH PAIN
     Route: 048
  4. PERMETHRIN [Suspect]
     Indication: ACARODERMATITIS
     Route: 061
     Dates: start: 20101022, end: 20101022
  5. FENTANYL-100 [Suspect]
     Indication: BACK PAIN
     Dosage: Q2D
     Route: 062
     Dates: start: 20070101, end: 20101023

REACTIONS (4)
  - DRUG EFFECT INCREASED [None]
  - WRONG TECHNIQUE IN DRUG USAGE PROCESS [None]
  - INTENTIONAL DRUG MISUSE [None]
  - DRUG INTERACTION [None]
